FAERS Safety Report 9838468 (Version 2)
Quarter: 2014Q1

REPORT INFORMATION
  Report Type: Spontaneous
  Country: US (occurrence: US)
  Receive Date: 20140123
  Receipt Date: 20140123
  Transmission Date: 20141002
  Serious: Yes (Hospitalization)
  Sender: FDA-Public Use
  Company Number: US-ASTELLAS-2013US004726

PATIENT
  Sex: Male

DRUGS (1)
  1. TARCEVA [Suspect]
     Indication: RENAL CANCER
     Dosage: UNK
     Route: 065

REACTIONS (3)
  - Abdominal mass [Unknown]
  - Pancreatic mass [Unknown]
  - Rash [Unknown]
